FAERS Safety Report 9664077 (Version 1)
Quarter: 2013Q4

REPORT INFORMATION
  Report Type: Spontaneous
  Country: US (occurrence: None)
  Receive Date: 20131030
  Receipt Date: 20131030
  Transmission Date: 20140711
  Serious: Yes (Other)
  Sender: FDA-Public Use
  Company Number: None

PATIENT
  Age: 57 Year
  Sex: Female
  Weight: 62.14 kg

DRUGS (1)
  1. CIPRO [Suspect]
     Indication: URINARY TRACT INFECTION
     Route: 048
     Dates: start: 20130930, end: 20131002

REACTIONS (20)
  - Drug hypersensitivity [None]
  - Neuropathy peripheral [None]
  - Activities of daily living impaired [None]
  - Urticaria [None]
  - Tendonitis [None]
  - Arthritis [None]
  - Movement disorder [None]
  - Musculoskeletal stiffness [None]
  - Pain in extremity [None]
  - Chills [None]
  - Back pain [None]
  - Culture urine positive [None]
  - Arthralgia [None]
  - Local swelling [None]
  - Rash [None]
  - Paraesthesia [None]
  - Hypoaesthesia [None]
  - Asthenia [None]
  - Hypoaesthesia oral [None]
  - Urticaria [None]
